FAERS Safety Report 13519556 (Version 2)
Quarter: 2017Q3

REPORT INFORMATION
  Report Type: Spontaneous
  Country: US (occurrence: US)
  Receive Date: 20170505
  Receipt Date: 20170704
  Transmission Date: 20171127
  Serious: Yes (Other)
  Sender: FDA-Public Use
  Company Number: US-ALLERGAN-1717263US

PATIENT
  Age: 76 Year
  Sex: Male

DRUGS (10)
  1. VESICARE [Suspect]
     Active Substance: SOLIFENACIN SUCCINATE
     Indication: PRODUCT USED FOR UNKNOWN INDICATION
     Dosage: 5 MG, QD
     Dates: start: 201602, end: 201604
  2. PANTOPRAZOLE [Concomitant]
     Active Substance: PANTOPRAZOLE
     Indication: ABDOMINAL PAIN UPPER
  3. FLOMAX [Suspect]
     Active Substance: TAMSULOSIN HYDROCHLORIDE
     Dosage: 5 MG, QD
     Dates: start: 201403, end: 20141207
  4. FLOMAX [Suspect]
     Active Substance: TAMSULOSIN HYDROCHLORIDE
     Indication: PRODUCT USED FOR UNKNOWN INDICATION
     Dosage: 5 MG, UNK
     Route: 048
     Dates: start: 201602, end: 201604
  5. LUPRON DEPOT [Concomitant]
     Active Substance: LEUPROLIDE ACETATE
     Indication: PRODUCT USED FOR UNKNOWN INDICATION
  6. TOVIAZ [Concomitant]
     Active Substance: FESOTERODINE FUMARATE
     Indication: PRODUCT USED FOR UNKNOWN INDICATION
  7. VESICARE [Suspect]
     Active Substance: SOLIFENACIN SUCCINATE
     Dosage: 5 MG, QD
     Route: 048
     Dates: start: 20140324, end: 20141207
  8. MYRBETRIQ [Concomitant]
     Active Substance: MIRABEGRON
     Indication: PRODUCT USED FOR UNKNOWN INDICATION
     Dosage: 25 MG, UNK
  9. SERTRALINE [Concomitant]
     Active Substance: SERTRALINE HYDROCHLORIDE
     Indication: DEPRESSION
  10. RAPAFLO [Suspect]
     Active Substance: SILODOSIN
     Indication: PRODUCT USED FOR UNKNOWN INDICATION
     Dosage: 8 MG, QD
     Route: 048
     Dates: start: 201605

REACTIONS (12)
  - Blood pressure systolic increased [Unknown]
  - Rhinorrhoea [Unknown]
  - Drug ineffective [Unknown]
  - Insomnia [Unknown]
  - Abdominal pain upper [Unknown]
  - Libido increased [Unknown]
  - Hot flush [Unknown]
  - Dry throat [Unknown]
  - Nocturia [Unknown]
  - Urethral disorder [Unknown]
  - Prostatic specific antigen increased [Unknown]
  - Depression [Unknown]
